FAERS Safety Report 5005474-3 (Version None)
Quarter: 2006Q2

REPORT INFORMATION
  Report Type: 
  Country: None (occurrence: None)
  Receive Date: 20060518
  Receipt Date: 20050120
  Transmission Date: 20061013
  Serious: Yes (Hospitalization, Disabling)
  Sender: FDA-Public Use
  Company Number: US-MERCK-0502USA01045

PATIENT
  Sex: Female
  Weight: 144 kg

DRUGS (2)
  1. VIOXX [Suspect]
     Indication: ARTHRITIS
     Route: 048
  2. VIOXX [Suspect]
     Route: 048

REACTIONS (4)
  - CARDIAC DISORDER [None]
  - CEREBRAL DISORDER [None]
  - CHEST PAIN [None]
  - HEART INJURY [None]
